FAERS Safety Report 19798876 (Version 1)
Quarter: 2021Q3

REPORT INFORMATION
  Report Type: Spontaneous
  Country: IT (occurrence: IT)
  Receive Date: 20210907
  Receipt Date: 20210907
  Transmission Date: 20211014
  Serious: Yes (Hospitalization, Other)
  Sender: FDA-Public Use
  Company Number: IT-BRISTOL-MYERS SQUIBB COMPANY-BMS-2021-087073

PATIENT
  Age: 72 Year
  Sex: Male

DRUGS (1)
  1. OPDIVO [Suspect]
     Active Substance: NIVOLUMAB
     Indication: NON-HODGKIN^S LYMPHOMA
     Dosage: 240 MILLIGRAM, CYCLICAL
     Route: 042
     Dates: start: 20210804, end: 20210804

REACTIONS (6)
  - Hepatitis [Recovering/Resolving]
  - Thrombocytopenia [Recovering/Resolving]
  - Jaundice [Recovering/Resolving]
  - Intentional product use issue [Unknown]
  - Hypertransaminasaemia [Recovering/Resolving]
  - Asthenia [Recovering/Resolving]

NARRATIVE: CASE EVENT DATE: 20210806
